FAERS Safety Report 7235937-1 (Version None)
Quarter: 2011Q1

REPORT INFORMATION
  Report Type: 
  Country: None (occurrence: None)
  Receive Date: 20110120
  Receipt Date: 20110117
  Transmission Date: 20110831
  Serious: Yes (Congenital Anomaly)
  Sender: FDA-Public Use
  Company Number: A0856358A

PATIENT
  Sex: Male
  Weight: 2.8 kg

DRUGS (11)
  1. TRUVADA [Suspect]
     Indication: ANTIVIRAL TREATMENT
     Dosage: 1TAB PER DAY
     Dates: end: 20090728
  2. LEXIVA [Suspect]
     Indication: ANTIRETROVIRAL THERAPY
     Dates: start: 20091015, end: 20091217
  3. REYATAZ [Suspect]
     Indication: ANTIVIRAL TREATMENT
     Dosage: 300MG PER DAY
     Dates: end: 20090728
  4. REYATAZ [Suspect]
     Indication: ANTIRETROVIRAL THERAPY
     Dates: start: 20090924, end: 20091015
  5. EPIVIR [Suspect]
     Indication: ANTIRETROVIRAL THERAPY
     Dates: start: 20090924
  6. NORVIR [Suspect]
     Dates: start: 20091015
  7. VIREAD [Suspect]
     Indication: ANTIRETROVIRAL THERAPY
     Dates: start: 20091015
  8. NORVIR [Suspect]
     Indication: ANTIRETROVIRAL THERAPY
     Dates: end: 20090728
  9. COMBIVIR [Suspect]
     Indication: ANTIVIRAL TREATMENT
     Dosage: 2TAB PER DAY
     Dates: start: 20090728, end: 20090924
  10. KALETRA [Suspect]
     Indication: ANTIVIRAL TREATMENT
     Dosage: 4TAB PER DAY
     Dates: start: 20090728, end: 20090924
  11. ISENTRESS [Suspect]
     Indication: HIV INFECTION
     Dates: start: 20091217

REACTIONS (5)
  - ULTRASOUND KIDNEY ABNORMAL [None]
  - ADRENOGENITAL SYNDROME [None]
  - HYPOCALCAEMIA [None]
  - HYPONATRAEMIA [None]
  - DRUG EXPOSURE DURING PREGNANCY [None]
